FAERS Safety Report 20168611 (Version 1)
Quarter: 2021Q4

REPORT INFORMATION
  Report Type: Other
  Country: GB (occurrence: GB)
  Receive Date: 20211210
  Receipt Date: 20211210
  Transmission Date: 20220303
  Serious: Yes (Hospitalization)
  Sender: FDA-Public Use
  Company Number: GB-MACLEODS PHARMA UK LTD-MAC2021033636

PATIENT

DRUGS (11)
  1. PANTOPRAZOLE SODIUM [Suspect]
     Active Substance: PANTOPRAZOLE SODIUM
     Indication: Product used for unknown indication
     Dosage: 40 MILLIGRAM, BID
     Route: 042
     Dates: start: 20211114, end: 20211114
  2. AMINO ACIDS, SOURCE UNSPECIFIED [Suspect]
     Active Substance: AMINO ACIDS, SOURCE UNSPECIFIED
     Indication: Parenteral nutrition
     Dosage: UNK, THRICE WEEKLY, PL 08828/0129
     Route: 042
     Dates: start: 20211114, end: 20211115
  3. CERNEVIT [Suspect]
     Active Substance: VITAMINS
     Indication: Parenteral nutrition
     Dosage: UNK, THRICE WEEKLY, POWDER FOR SOLUTION FOR INJECTION
     Route: 042
     Dates: start: 20211114, end: 20211115
  4. DEXTROSE [Suspect]
     Active Substance: DEXTROSE
     Indication: Parenteral nutrition
     Dosage: 50 PERCENT, THRICE WEEKLY
     Route: 042
     Dates: start: 20211114, end: 20211115
  5. IRON\MINERALS\POTASSIUM IOD\SODIUM FLUORIDE\SODIUM MOLYBDATE\SODIUM SE [Suspect]
     Active Substance: IRON\MINERALS\POTASSIUM IOD\SODIUM FLUORIDE\SODIUM MOLYBDATE\SODIUM SELENITE\ZINC
     Indication: Parenteral nutrition
     Dosage: UNK, THRICE WEEKLY
     Route: 042
     Dates: start: 20211114, end: 20211115
  6. SMOFLIPID [Suspect]
     Active Substance: FISH OIL\MEDIUM-CHAIN TRIGLYCERIDES\OLIVE OIL\SOYBEAN OIL
     Indication: Parenteral nutrition
     Dosage: UNK, THRICE WEEKLY
     Route: 042
     Dates: start: 20211114, end: 20211115
  7. TPN [Suspect]
     Active Substance: AMINO ACIDS\DEXTROSE\ELECTROLYTES NOS\SOYBEAN OIL
     Indication: Parenteral nutrition
     Dosage: UNK, SIX TIMES A WEEK, START DATE 2018
     Route: 065
  8. WATER FOR INJECTION [Suspect]
     Active Substance: WATER
     Indication: Parenteral nutrition
     Dosage: UNK, THRICE WEEKLY
     Route: 042
     Dates: start: 20211114, end: 20211115
  9. MAGNESIUM SULFATE [Suspect]
     Active Substance: MAGNESIUM SULFATE
     Indication: Parenteral nutrition
     Dosage: 49.3 PERCENT, THRICE WEEKLY, BAG
     Route: 042
     Dates: start: 20211114, end: 20211115
  10. SODIUM CHLORIDE [Suspect]
     Active Substance: SODIUM CHLORIDE
     Indication: Parenteral nutrition
     Dosage: 23.5 PERCENT, THRICE WEEKLY
     Route: 065
     Dates: start: 20211114, end: 20211115
  11. WATER [Suspect]
     Active Substance: WATER
     Indication: Parenteral nutrition
     Dosage: UNK, THRICE WEEKLY, WATER FOR TPN FORMULATIONS
     Route: 042
     Dates: start: 20211114, end: 20211115

REACTIONS (2)
  - Catheter site swelling [Recovering/Resolving]
  - Catheter site pain [Recovering/Resolving]

NARRATIVE: CASE EVENT DATE: 20211114
